FAERS Safety Report 9339674 (Version 2)
Quarter: 2013Q2

REPORT INFORMATION
  Report Type: Spontaneous
  Country: US (occurrence: US)
  Receive Date: 20130610
  Receipt Date: 20130624
  Transmission Date: 20140414
  Serious: No
  Sender: FDA-Public Use
  Company Number: US-BIOGENIDEC-2013BI051461

PATIENT
  Age: 38 Year
  Sex: Male

DRUGS (1)
  1. AVONEX [Suspect]
     Indication: MULTIPLE SCLEROSIS
     Route: 030
     Dates: start: 20051204, end: 20130508

REACTIONS (7)
  - Drug dose omission [Recovered/Resolved]
  - Gait disturbance [Unknown]
  - Dysphemia [Unknown]
  - Musculoskeletal disorder [Recovered/Resolved]
  - Dysarthria [Recovered/Resolved]
  - Loss of control of legs [Unknown]
  - Speech disorder [Unknown]
